FAERS Safety Report 10595821 (Version 3)
Quarter: 2015Q1

REPORT INFORMATION
  Report Type: Report from Study
  Country: US (occurrence: US)
  Receive Date: 20141120
  Receipt Date: 20150116
  Transmission Date: 20150720
  Serious: Yes (Death, Hospitalization)
  Sender: FDA-Public Use
  Company Number: US-ACTELION-A-US2014-108418

PATIENT
  Age: 18 Month
  Sex: Male

DRUGS (2)
  1. TRACLEER [Suspect]
     Active Substance: BOSENTAN\BOSENTAN MONOHYDRATE
     Indication: PULMONARY ARTERIAL HYPERTENSION
     Dosage: UNK
     Route: 048
     Dates: end: 20141212
  2. SILDENAFIL. [Concomitant]
     Active Substance: SILDENAFIL

REACTIONS (5)
  - Catheterisation cardiac [Unknown]
  - Cardio-respiratory arrest [Unknown]
  - Tracheostomy [Unknown]
  - Death [Fatal]
  - Extracorporeal membrane oxygenation [Unknown]

NARRATIVE: CASE EVENT DATE: 20141212
